FAERS Safety Report 8554665-3 (Version None)
Quarter: 2012Q3

REPORT INFORMATION
  Report Type: 
  Country: None (occurrence: None)
  Receive Date: 20120731
  Receipt Date: 20120727
  Transmission Date: 20120928
  Serious: Yes (Death, Hospitalization)
  Sender: FDA-Public Use
  Company Number: DE-ROCHE-1044682

PATIENT
  Weight: 50 kg

DRUGS (7)
  1. TILIDINE [Concomitant]
     Indication: PAIN
     Dosage: TOTAL DAILY DOSE: 50/4 (UNIT: MG)
     Route: 048
     Dates: start: 20111221
  2. VEMURAFENIB [Suspect]
     Indication: MALIGNANT MELANOMA
     Dosage: LAST DOSE PRIOR TO EVENT: 21/FEB/2011
     Route: 048
     Dates: start: 20111221
  3. PANTOPRAZOLE [Concomitant]
     Dosage: TOTAL DAILY DOSE: 40 (UNIT: UNKNOWN)
     Route: 048
     Dates: start: 20110101
  4. METOPROLOL TARTRATE [Concomitant]
     Dosage: TOTAL DAILY DOSE: 100 (UNIT: UNKNOWN)
     Route: 048
     Dates: start: 20010101
  5. MOVIPREP [Concomitant]
     Dosage: TOTAL DAILY DOSE: 13.81 (UNIT: UNKNOWN)
     Route: 048
     Dates: start: 20111221
  6. DEXAMETHASONE [Concomitant]
     Dosage: TOTAL DAILY DOSE: 12 (UNIT: UNKNOWN)
     Route: 048
     Dates: start: 20111024
  7. LEVOTHYROXINE SODIUM [Concomitant]
     Dosage: TOTAL DAILY DOSE: 100 (UNIT: UNKNOWN)
     Route: 048
     Dates: start: 20010101

REACTIONS (1)
  - PNEUMONIA [None]
